FAERS Safety Report 6115111-2 (Version None)
Quarter: 2009Q1

REPORT INFORMATION
  Report Type: 
  Country: None (occurrence: None)
  Receive Date: 20090311
  Receipt Date: 20080818
  Transmission Date: 20090719
  Serious: Yes (Hospitalization)
  Sender: FDA-Public Use
  Company Number: US200808000958

PATIENT
  Age: 64 Year
  Sex: Male
  Weight: 99.3 kg

DRUGS (10)
  1. GEMZAR [Suspect]
     Indication: PANCREATIC CARCINOMA
     Dosage: 2200 MG/ 250CC ON DAYS 1 AND 8 EVERY 21 DAYS
     Dates: end: 20080101
  2. NEXIUM [Concomitant]
  3. MULTIVITAMIN [Concomitant]
  4. TRICOR [Concomitant]
  5. LIPITOR [Concomitant]
  6. ENDUR-ACIN (NICOTINIC ACID) [Concomitant]
  7. ASPIRIN [Concomitant]
  8. CELEBREX [Concomitant]
  9. CALCIUM WITH VITAMIN D (CALCIUM PHOSPHATE, CALCIUM SODIUM LACTATE, ERG [Concomitant]
  10. DARVOCET [Concomitant]

REACTIONS (1)
  - OEDEMA PERIPHERAL [None]
